FAERS Safety Report 5811720-6 (Version None)
Quarter: 2008Q3

REPORT INFORMATION
  Report Type: 
  Country: None (occurrence: None)
  Receive Date: 20080716
  Receipt Date: 20080709
  Transmission Date: 20090109
  Serious: Yes (Hospitalization)
  Sender: FDA-Public Use
  Company Number: A0738012A

PATIENT
  Age: 64 Year
  Sex: Male

DRUGS (2)
  1. ACYCLOVIR [Suspect]
     Dosage: 400MG THREE TIMES PER DAY
     Route: 048
     Dates: start: 20080616
  2. MOTRIN [Suspect]
     Indication: PAIN
     Dosage: 600MG THREE TIMES PER DAY
     Route: 048

REACTIONS (3)
  - HYPERHIDROSIS [None]
  - NAUSEA [None]
  - PAIN IN JAW [None]
